FAERS Safety Report 18899083 (Version 1)
Quarter: 2021Q1

REPORT INFORMATION
  Report Type: Spontaneous
  Country: GB (occurrence: GB)
  Receive Date: 20210216
  Receipt Date: 20210216
  Transmission Date: 20210420
  Serious: Yes (Other)
  Sender: FDA-Public Use
  Company Number: GB-SUN PHARMACEUTICAL INDUSTRIES LTD-2021RR-281220

PATIENT
  Age: 29 Year
  Sex: Male
  Weight: 83 kg

DRUGS (9)
  1. DIAZEPAM. [Concomitant]
     Active Substance: DIAZEPAM
     Dosage: ONE AS NEED, MAXIMUM THREE TIMES A DAY
     Route: 065
     Dates: start: 20201102, end: 20201215
  2. FLUTICASONE. [Concomitant]
     Active Substance: FLUTICASONE
     Indication: PRODUCT USED FOR UNKNOWN INDICATION
     Dosage: TWO SPRAYS TO BE USED IN EACH NOSTRIL ONCE A DAY
     Route: 065
     Dates: start: 20201102, end: 20201217
  3. ZOPICLONE [Concomitant]
     Active Substance: ZOPICLONE
     Indication: PRODUCT USED FOR UNKNOWN INDICATION
     Dosage: ONE TO BE TAKEN AT NIGHT HALF AN HOUR BEFORE BED
     Route: 065
     Dates: start: 20210104
  4. CITALOPRAM [Suspect]
     Active Substance: CITALOPRAM HYDROBROMIDE
     Indication: PRODUCT USED FOR UNKNOWN INDICATION
     Dosage: ONE TO BE TAKEN EACH DAY
     Route: 065
     Dates: start: 20201013
  5. MIRTAZAPINE. [Concomitant]
     Active Substance: MIRTAZAPINE
     Dosage: ONE TO BE TAKEN AT NIGHT
     Route: 065
     Dates: start: 20201127, end: 20210112
  6. SYMBICORT [Concomitant]
     Active Substance: BUDESONIDE\FORMOTEROL FUMARATE DIHYDRATE
     Indication: MIXED ANXIETY AND DEPRESSIVE DISORDER
     Dosage: ONE PUFF TO BE INHALED TWICE A DAY
     Route: 065
     Dates: start: 20210125
  7. MIRTAZAPINE. [Concomitant]
     Active Substance: MIRTAZAPINE
     Indication: ANXIETY
     Dosage: ONE TO BE TAKEN AT NIGHT
     Route: 065
     Dates: start: 20201028, end: 20201210
  8. DIAZEPAM. [Concomitant]
     Active Substance: DIAZEPAM
     Indication: MUSCLE SPASMS
     Dosage: ONE AS NEED, MAXIMUM THREE TIMES A DAY
     Route: 065
     Dates: start: 20201231
  9. MIRTAZAPINE. [Concomitant]
     Active Substance: MIRTAZAPINE
     Dosage: ONE TO BE TAKEN AT NIGHT
     Route: 065
     Dates: start: 20201221

REACTIONS (2)
  - Dystonia [Unknown]
  - Facial spasm [Recovered/Resolved]

NARRATIVE: CASE EVENT DATE: 20201103
